FAERS Safety Report 4569620-8 (Version None)
Quarter: 2005Q1

REPORT INFORMATION
  Report Type: 
  Country: None (occurrence: None)
  Receive Date: 20050203
  Receipt Date: 20050124
  Transmission Date: 20050727
  Serious: Yes (Hospitalization)
  Sender: FDA-Public Use
  Company Number: FR-ABBOTT-05P-056-0288000-00

PATIENT
  Sex: Female

DRUGS (3)
  1. DEPAKENE [Suspect]
     Indication: INTENTIONAL MISUSE
     Dosage: 25 TO 30 TABLETS (12.5 TO 15 G)
     Route: 048
     Dates: start: 20041121, end: 20041121
  2. DEPAKENE [Suspect]
     Indication: MYOCLONIC EPILEPSY
     Route: 048
     Dates: start: 19980101, end: 20041120
  3. DEPAKENE [Suspect]
     Route: 048
     Dates: start: 20041125

REACTIONS (4)
  - BLOOD FIBRINOGEN DECREASED [None]
  - DRUG LEVEL INCREASED [None]
  - INTENTIONAL MISUSE [None]
  - SUICIDE ATTEMPT [None]
